FAERS Safety Report 10724613 (Version 3)
Quarter: 2015Q1

REPORT INFORMATION
  Report Type: Spontaneous
  Country: US (occurrence: US)
  Receive Date: 20150120
  Receipt Date: 20150122
  Transmission Date: 20150721
  Serious: Yes (Death, Other)
  Sender: FDA-Public Use
  Company Number: US-JNJFOC-20150108829

PATIENT
  Age: 65 Year
  Sex: Male

DRUGS (1)
  1. DIPHENHYDRAMINE [Suspect]
     Active Substance: DIPHENHYDRAMINE
     Indication: PRODUCT USED FOR UNKNOWN INDICATION
     Route: 065

REACTIONS (9)
  - Respiratory depression [Unknown]
  - Hyperreflexia [Unknown]
  - Delirium [Unknown]
  - Agitation [Unknown]
  - Tremor [Unknown]
  - Toxicity to various agents [Fatal]
  - Coma [Unknown]
  - Depressed level of consciousness [Unknown]
  - Dystonia [Unknown]
